FAERS Safety Report 7714096-2 (Version None)
Quarter: 2011Q3

REPORT INFORMATION
  Report Type: 
  Country: None (occurrence: None)
  Receive Date: 20110828
  Receipt Date: 20110819
  Transmission Date: 20111222
  Serious: Yes (Other)
  Sender: FDA-Public Use
  Company Number: US-US-EMD SERONO, INC.-7076433

PATIENT
  Sex: Female

DRUGS (8)
  1. LEVOTHYROXINE SODIUM [Concomitant]
  2. TOPAMAX [Concomitant]
  3. LORATADINE [Concomitant]
  4. SAIZEN [Suspect]
     Indication: SEPTO-OPTIC DYSPLASIA
     Route: 058
  5. SAIZEN [Suspect]
     Route: 058
     Dates: start: 20091002
  6. CORTEF [Concomitant]
  7. PROVERA [Concomitant]
  8. PREMARIN [Concomitant]

REACTIONS (2)
  - SUICIDAL IDEATION [None]
  - DEPRESSION [None]
